FAERS Safety Report 9267288 (Version 3)
Quarter: 2013Q2

REPORT INFORMATION
  Report Type: Spontaneous
  Country: JP (occurrence: JP)
  Receive Date: 20130502
  Receipt Date: 20130516
  Transmission Date: 20140414
  Serious: Yes (Other)
  Sender: FDA-Public Use
  Company Number: JP-JNJFOC-20130409395

PATIENT
  Age: 65 Year
  Sex: Male

DRUGS (3)
  1. TRAMCET [Suspect]
     Indication: PAIN
     Dosage: 1 PER 1 DAY
     Route: 048
  2. TRAMCET [Suspect]
     Indication: PAIN
     Route: 048
  3. TRAVELMIN [Concomitant]
     Route: 048

REACTIONS (2)
  - Drug dependence [Unknown]
  - Delirium [Recovered/Resolved]
